FAERS Safety Report 5918048-4 (Version None)
Quarter: 2008Q4

REPORT INFORMATION
  Report Type: 
  Country: None (occurrence: None)
  Receive Date: 20081014
  Receipt Date: 20081003
  Transmission Date: 20090506
  Serious: Yes (Hospitalization)
  Sender: FDA-Public Use
  Company Number: SE-PFIZER INC-2008083632

PATIENT
  Sex: Female

DRUGS (2)
  1. PREDNISOLONE [Suspect]
     Indication: GLOMERULOSCLEROSIS
     Dosage: DAILY DOSE:60MG-FREQ:DAILY
     Route: 048
  2. RENITEC [Concomitant]

REACTIONS (1)
  - TOOTH DISCOLOURATION [None]
